FAERS Safety Report 20257512 (Version 2)
Quarter: 2022Q1

REPORT INFORMATION
  Report Type: Other
  Country: US (occurrence: None)
  Receive Date: 20211230
  Receipt Date: 20220107
  Transmission Date: 20220423
  Serious: Yes (Hospitalization)
  Sender: FDA-Public Use
  Company Number: US-ROCHE-2985042

PATIENT
  Sex: Male

DRUGS (1)
  1. CELLCEPT [Suspect]
     Active Substance: MYCOPHENOLATE MOFETIL
     Indication: Pemphigoid
     Dosage: 2 TABS EVERY 12 HOURS
     Route: 048

REACTIONS (2)
  - Skin disorder [Unknown]
  - Off label use [Unknown]
